FAERS Safety Report 6894946-2 (Version None)
Quarter: 2010Q3

REPORT INFORMATION
  Report Type: 
  Country: None (occurrence: None)
  Receive Date: 20100802
  Receipt Date: 20100722
  Transmission Date: 20110219
  Serious: Yes (Disabling)
  Sender: FDA-Public Use
  Company Number: GB-ROCHE-717005

PATIENT
  Age: 59 Year
  Sex: Female
  Weight: 60 kg

DRUGS (6)
  1. HERCEPTIN [Suspect]
     Indication: BREAST CANCER
     Route: 042
     Dates: start: 20090915
  2. HERCEPTIN [Suspect]
     Dosage: DOSE INCREASED.
     Route: 042
  3. DOCETAXEL [Suspect]
     Indication: BREAST CANCER
     Route: 042
     Dates: start: 20090915, end: 20091201
  4. DEXAMETHASONE [Concomitant]
  5. LETROZOLE [Concomitant]
     Route: 048
  6. METOCLOPRAMIDE [Concomitant]

REACTIONS (4)
  - ASTHENIA [None]
  - MALAISE [None]
  - MOTOR NEURONE DISEASE [None]
  - PERIPHERAL MOTOR NEUROPATHY [None]
